FAERS Safety Report 7644525-4 (Version None)
Quarter: 2011Q3

REPORT INFORMATION
  Report Type: 
  Country: None (occurrence: None)
  Receive Date: 20110725
  Receipt Date: 20110712
  Transmission Date: 20111222
  Serious: Yes (Other)
  Sender: FDA-Public Use
  Company Number: DSA_47151_2011

PATIENT
  Sex: Male

DRUGS (10)
  1. MULTAQ [Suspect]
     Indication: ATRIAL FLUTTER
     Dosage: (400 MG BID ORAL)
     Route: 048
     Dates: start: 20110601
  2. MULTAQ [Suspect]
     Indication: ATRIAL FIBRILLATION
     Dosage: (400 MG BID ORAL)
     Route: 048
     Dates: start: 20110601
  3. CARDIZEM [Suspect]
     Indication: PRODUCT USED FOR UNKNOWN INDICATION
     Dosage: (120 MG QD) ; (120 MG QD) ; (240 MG QD)
  4. UROXATRAL [Suspect]
     Indication: BENIGN PROSTATIC HYPERPLASIA
     Dosage: (10 MG QD ORAL)
     Route: 048
  5. METFORMIN HCL [Concomitant]
  6. COSAMIN DS [Concomitant]
  7. CENTRUM /00554501/ [Concomitant]
  8. LIPITOR [Concomitant]
  9. PRADAXA [Concomitant]
  10. VASOTEC [Concomitant]

REACTIONS (4)
  - FATIGUE [None]
  - HEART RATE IRREGULAR [None]
  - BLOOD PRESSURE DECREASED [None]
  - ATRIAL FIBRILLATION [None]
